FAERS Safety Report 5430297-0 (Version None)
Quarter: 2007Q3

REPORT INFORMATION
  Report Type: 
  Country: None (occurrence: None)
  Receive Date: 20070828
  Receipt Date: 20070813
  Transmission Date: 20080115
  Serious: Yes (Other)
  Sender: FDA-Public Use
  Company Number: 2007RR-09336

PATIENT
  Age: 46 Year
  Sex: Female

DRUGS (2)
  1. CLARITHROMYCIN [Suspect]
     Dosage: ORAL
     Route: 048
  2. DICLOFENAC GEL 1% (DICLOFENAC) UNKNOWN [Suspect]
     Dosage: TOPICAL
     Route: 061

REACTIONS (5)
  - ABDOMINAL PAIN [None]
  - AGRANULOCYTOSIS [None]
  - GRANULOCYTOPENIA [None]
  - LEUKOPENIA [None]
  - THROMBOCYTOPENIA [None]
